FAERS Safety Report 5487159-2 (Version None)
Quarter: 2007Q4

REPORT INFORMATION
  Report Type: 
  Country: None (occurrence: None)
  Receive Date: 20071016
  Receipt Date: 20071012
  Transmission Date: 20080405
  Serious: Yes (Hospitalization, Other)
  Sender: FDA-Public Use
  Company Number: HQWYE586916APR07

PATIENT
  Age: 28 Year
  Sex: Male

DRUGS (1)
  1. AMIODARONE HYDROCHLORIDE [Suspect]
     Dosage: UNSPECIFIED

REACTIONS (2)
  - HYPOKALAEMIA [None]
  - THYROTOXIC PERIODIC PARALYSIS [None]
